FAERS Safety Report 6862805-7 (Version None)
Quarter: 2010Q3

REPORT INFORMATION
  Report Type: 
  Country: None (occurrence: None)
  Receive Date: 20100719
  Receipt Date: 20100705
  Transmission Date: 20110219
  Serious: Yes (Hospitalization)
  Sender: FDA-Public Use
  Company Number: GER/GER/10/0013999

PATIENT
  Age: 83 Year
  Sex: Male

DRUGS (9)
  1. ALLOPURINOL [Suspect]
     Indication: GOUT
     Dates: start: 20100401
  2. PREDNISOLONE [Concomitant]
  3. BISOPROLOL FUMARATE [Concomitant]
  4. FURORESE 40 (FUROSEMIDE) [Concomitant]
  5. HYDROCHLOROTHIAZIDE [Concomitant]
  6. ASPIRIN [Concomitant]
  7. PANTOPRAZOLE SODIUM [Concomitant]
  8. METOCLOPRAMIDE [Concomitant]
  9. LAXOFALK BTL (MACROGOL) [Concomitant]

REACTIONS (9)
  - ACUTE HEPATIC FAILURE [None]
  - CHEST DISCOMFORT [None]
  - DRUG TOXICITY [None]
  - DYSPNOEA [None]
  - GENERAL PHYSICAL HEALTH DETERIORATION [None]
  - IMMOBILE [None]
  - INTERNATIONAL NORMALISED RATIO INCREASED [None]
  - SKIN TURGOR DECREASED [None]
  - UNEVALUABLE EVENT [None]
